FAERS Safety Report 8523640-7 (Version None)
Quarter: 2012Q3

REPORT INFORMATION
  Report Type: 
  Country: None (occurrence: None)
  Receive Date: 20120720
  Receipt Date: 20120709
  Transmission Date: 20120928
  Serious: Yes (Death, Hospitalization)
  Sender: FDA-Public Use
  Company Number: US-BAYER-2012-047456

PATIENT
  Age: 86 Year
  Sex: Male
  Weight: 50.794 kg

DRUGS (22)
  1. ASPIRIN [Concomitant]
     Dosage: 325 MG, QD
     Route: 048
  2. LOTEMAX [Concomitant]
     Route: 047
  3. CALCIUM CARBONATE W/COLECALCIFEROL [Concomitant]
     Dosage: 1 U, UNK
     Route: 048
  4. MULTI-VITAMIN [Concomitant]
     Dosage: 1 U, UNK
     Route: 048
  5. NEXIUM [Concomitant]
     Dosage: 40 MG, UNK
     Route: 048
  6. ISOSORBIDE DINITRATE [Concomitant]
     Dosage: 30 MG, UNK
     Route: 048
  7. MIRTAZAPINE [Concomitant]
     Indication: SLEEP DISORDER
     Dosage: 30 MG, UNK
     Route: 048
  8. TYLENOL PM, EXTRA STRENGTH [DIPHENHYDRAMINE,PARACETAMOL] [Concomitant]
  9. COREG [Concomitant]
     Indication: CARDIAC DISORDER
     Dosage: 6.25 MG, UNK
     Route: 048
  10. HYDROCODONE BITARTRATE + ACETAMINOPHEN [Concomitant]
     Indication: PAIN
     Route: 048
  11. IBUPROFEN [Concomitant]
     Dosage: 200 MG, UNK
     Route: 048
  12. POTASSIUM CHLORIDE [Concomitant]
     Dosage: 10 MEQ, UNK
     Route: 048
  13. LISINOPRIL [Concomitant]
     Dosage: 10 MG, QD
     Route: 048
  14. PLAVIX [Concomitant]
     Dosage: 75 MG, UNK
     Route: 048
  15. SIMVASTATIN [Concomitant]
     Indication: BLOOD CHOLESTEROL INCREASED
     Dosage: 20 MG, QD
     Route: 048
  16. ATIVAN [Concomitant]
     Indication: ANXIETY
     Dosage: 0.5 MG, UNK
     Route: 048
  17. MIRTAZAPINE [Concomitant]
     Indication: APPETITE DISORDER
  18. NEXAVAR [Suspect]
     Indication: HEPATIC NEOPLASM MALIGNANT
     Dosage: 400 MG, BID
     Route: 048
     Dates: start: 20101116
  19. LATANOPROST [Concomitant]
     Dosage: UNK
     Route: 047
  20. ZOFRAN [Concomitant]
     Indication: NAUSEA
     Dosage: 8 MG, UNK
  21. LASIX [Concomitant]
     Dosage: 40 MG, QD
     Route: 048
  22. NITROSTAT [Concomitant]
     Indication: CHEST PAIN
     Dosage: 0.4 MG, UNK
     Route: 060

REACTIONS (1)
  - MYOCARDIAL INFARCTION [None]
